FAERS Safety Report 9700167 (Version 2)
Quarter: 2013Q4

REPORT INFORMATION
  Report Type: Spontaneous
  Country: US (occurrence: None)
  Receive Date: 20131118
  Receipt Date: 20131122
  Transmission Date: 20140711
  Serious: Yes (Life-Threatening)
  Sender: FDA-Public Use
  Company Number: PI-09956

PATIENT
  Age: 65 Year
  Sex: Male
  Weight: 142 kg

DRUGS (6)
  1. CHLORAPREP [Suspect]
     Indication: PREOPERATIVE CARE
     Route: 061
     Dates: start: 20130601
  2. METOPROLOL [Concomitant]
  3. CAPTOPRIL [Concomitant]
  4. ASPIRIN [Concomitant]
  5. ATORVASTATIN [Concomitant]
  6. NAPROXEN [Concomitant]

REACTIONS (1)
  - Anaphylactic reaction [None]
